FAERS Safety Report 18648954 (Version 1)
Quarter: 2020Q4

REPORT INFORMATION
  Report Type: Spontaneous
  Country: US (occurrence: US)
  Receive Date: 20201221
  Receipt Date: 20201221
  Transmission Date: 20210114
  Serious: Yes (Hospitalization)
  Sender: FDA-Public Use
  Company Number: None

PATIENT
  Age: 54 Year
  Sex: Female

DRUGS (1)
  1. ZOLEDRONIC (ZOLEDRONIC ACID 4MG/VIL INJ) [Suspect]
     Active Substance: ZOLEDRONIC ACID
     Dates: start: 20201002

REACTIONS (1)
  - Myalgia [None]
